FAERS Safety Report 5847446-2 (Version None)
Quarter: 2008Q3

REPORT INFORMATION
  Report Type: 
  Country: None (occurrence: None)
  Receive Date: 20080813
  Receipt Date: 20080805
  Transmission Date: 20090109
  Serious: Yes (Death)
  Sender: FDA-Public Use
  Company Number: 2008-181673-NL

PATIENT
  Age: 45 Year
  Sex: Male

DRUGS (3)
  1. NANDROLONE DECANOATE [Suspect]
     Dosage: DF
  2. METANDIENONE [Suspect]
     Dosage: DF
  3. MESTEROLONE [Suspect]
     Dosage: DF

REACTIONS (1)
  - CORONARY ARTERY THROMBOSIS [None]
